FAERS Safety Report 6277118-4 (Version None)
Quarter: 2009Q3

REPORT INFORMATION
  Report Type: 
  Country: None (occurrence: None)
  Receive Date: 20090722
  Receipt Date: 20090112
  Transmission Date: 20100115
  Serious: No
  Sender: FDA-Public Use
  Company Number: US-BRISTOL-MYERS SQUIBB COMPANY-14466890

PATIENT
  Age: 58 Year
  Sex: Male
  Weight: 129 kg

DRUGS (18)
  1. COUMADIN [Suspect]
     Indication: ATRIAL FIBRILLATION
     Dosage: 7.5MG/DAY - 3DAYS + 10MG/DAY - 4DAYS IN A WEEK 7.5MG/DAY - 2 DAYS + 10MG/DAY - 5DAYS IN A WEEK
     Dates: start: 20080601
  2. SKELAXIN [Concomitant]
     Indication: PAIN
  3. OXYCODONE HCL [Concomitant]
     Indication: PAIN
  4. GABAPENTIN [Concomitant]
     Indication: PAIN
  5. LIDODERM [Concomitant]
  6. JANUVIA [Concomitant]
  7. GLIMEPIRIDE [Concomitant]
  8. METFORMIN HCL [Concomitant]
  9. FUROSEMIDE [Concomitant]
  10. SOTALOL [Concomitant]
  11. CRESTOR [Concomitant]
  12. ULTRASE MT20 [Concomitant]
  13. XIFAXAN [Concomitant]
  14. CEFADROXIL [Concomitant]
  15. MIRAPEX [Concomitant]
  16. ASCORBIC ACID [Concomitant]
  17. CALCIUM [Concomitant]
  18. FISH OIL [Concomitant]

REACTIONS (1)
  - INTERNATIONAL NORMALISED RATIO FLUCTUATION [None]
